FAERS Safety Report 7460671-2 (Version None)
Quarter: 2011Q2

REPORT INFORMATION
  Report Type: 
  Country: None (occurrence: None)
  Receive Date: 20110505
  Receipt Date: 20110504
  Transmission Date: 20111010
  Serious: Yes (Other)
  Sender: FDA-Public Use
  Company Number: CHPA2011US06302

PATIENT
  Sex: Male

DRUGS (1)
  1. EXCEDRIN UNKNOWN [Suspect]
     Dosage: UNK, UNK
     Route: 048

REACTIONS (1)
  - INTENTIONAL DRUG MISUSE [None]
